FAERS Safety Report 9466858 (Version 4)
Quarter: 2014Q1

REPORT INFORMATION
  Report Type: Spontaneous
  Country: JP (occurrence: JP)
  Receive Date: 20130820
  Receipt Date: 20140203
  Transmission Date: 20141002
  Serious: Yes (Other)
  Sender: FDA-Public Use
  Company Number: JP-OTSUKA-JP-2013-13120

PATIENT
  Age: 76 Year
  Sex: Male
  Weight: 51 kg

DRUGS (8)
  1. SAMSCA [Suspect]
     Indication: CARDIAC FAILURE CONGESTIVE
     Dosage: 7.5 MG MILLIGRAM(S), QD
     Route: 048
     Dates: start: 20130808, end: 20130808
  2. SAMSCA [Suspect]
     Dosage: 15 MG MILLIGRAM(S), QD
     Route: 048
     Dates: start: 20130809, end: 20130811
  3. RENIVACE [Concomitant]
     Indication: HYPERTENSION
     Dosage: 5 MG MILLIGRAM(S), QD
     Route: 048
  4. NORVASC [Concomitant]
     Indication: HYPERTENSION
     Dosage: 2.5 MG MILLIGRAM(S), BID
     Route: 048
  5. TAKEPRON [Concomitant]
     Indication: GASTRIC ULCER
     Dosage: 15 MG MILLIGRAM(S), BID
     Route: 048
  6. LASIX [Concomitant]
     Indication: CARDIAC FAILURE CONGESTIVE
     Dosage: 20 MG MILLIGRAM(S), BID
     Route: 048
  7. ALDACTONE A [Concomitant]
     Indication: CARDIAC FAILURE CONGESTIVE
     Dosage: 25 MG MILLIGRAM(S), BID
     Route: 048
  8. WARFARIN K [Concomitant]
     Route: 048

REACTIONS (2)
  - Altered state of consciousness [Recovered/Resolved]
  - Hypernatraemia [Recovering/Resolving]
